FAERS Safety Report 4896010-0 (Version None)
Quarter: 2006Q1

REPORT INFORMATION
  Report Type: 
  Country: None (occurrence: None)
  Receive Date: 20060126
  Receipt Date: 20060116
  Transmission Date: 20060701
  Serious: Yes (Other)
  Sender: FDA-Public Use
  Company Number: 200512503BWH

PATIENT
  Age: 63 Year
  Sex: Male

DRUGS (14)
  1. LEVITRA [Suspect]
     Indication: ERECTILE DYSFUNCTION
     Dosage: 20 MG, ONCE, ORAL
     Route: 048
     Dates: start: 20051101
  2. ASPIRIN [Concomitant]
  3. ATENOLOL [Concomitant]
  4. B-6 [Concomitant]
  5. CONQUER HA JOINT [Concomitant]
  6. GARLIC [Concomitant]
  7. TRIAMTERENE AND HYDROCHLOROTHIAZIDE [Concomitant]
  8. MULTIPLE VITAMIN [Concomitant]
  9. SELENIUM SULFIDE [Concomitant]
  10. VITAMIN E [Concomitant]
  11. WELCHOL [Concomitant]
  12. ZETIA [Concomitant]
  13. ALCOHOL [Concomitant]
  14. CAFFEINE [Concomitant]

REACTIONS (6)
  - ASTHENIA [None]
  - CHEST DISCOMFORT [None]
  - DYSPNOEA [None]
  - ERUCTATION [None]
  - FLATULENCE [None]
  - MYOCARDIAL INFARCTION [None]
